FAERS Safety Report 6347081-6 (Version None)
Quarter: 2009Q3

REPORT INFORMATION
  Report Type: 
  Country: None (occurrence: None)
  Receive Date: 20090910
  Receipt Date: 20090903
  Transmission Date: 20100115
  Serious: Yes (Hospitalization)
  Sender: FDA-Public Use
  Company Number: US-AMGEN-STX363126

PATIENT
  Sex: Male

DRUGS (10)
  1. SENSIPAR [Suspect]
     Indication: HYPERPARATHYROIDISM SECONDARY
  2. EPOGEN [Concomitant]
     Indication: DIALYSIS
  3. ZEMPLAR [Concomitant]
  4. VENOFER [Concomitant]
  5. ALLOPURINOL [Concomitant]
  6. HUMALOG [Concomitant]
  7. PHOSLO [Concomitant]
  8. PROTONIX [Concomitant]
  9. TORSEMIDE [Concomitant]
  10. LIDOCAINE [Concomitant]

REACTIONS (1)
  - PANCREATITIS [None]
